FAERS Safety Report 7770272-4 (Version None)
Quarter: 2011Q3

REPORT INFORMATION
  Report Type: 
  Country: None (occurrence: None)
  Receive Date: 20110922
  Receipt Date: 20100902
  Transmission Date: 20111222
  Serious: No
  Sender: FDA-Public Use
  Company Number: US-ASTRAZENECA-2007UW09451

PATIENT
  Age: 465 Month
  Sex: Female
  Weight: 132.4 kg

DRUGS (29)
  1. SEROQUEL [Suspect]
     Route: 048
     Dates: start: 20090401
  2. TYLENOL-500 [Concomitant]
  3. NOVOLOG [Concomitant]
  4. SEROQUEL [Suspect]
     Dosage: 175MG - 200MG PER DAY
     Route: 048
     Dates: start: 20010801, end: 20030901
  5. ABILIFY [Concomitant]
     Dates: start: 20060601, end: 20060901
  6. RISPERDAL [Concomitant]
     Indication: BIPOLAR DISORDER
     Dosage: .25 TO 3 MG
     Dates: start: 20000501, end: 20030501
  7. ZYPREXA [Concomitant]
     Dates: start: 20040401, end: 20040801
  8. WELLBUTRIN XL [Concomitant]
  9. VISTARIL [Concomitant]
  10. LORTAB [Concomitant]
  11. SEROQUEL [Suspect]
     Indication: SLEEP DISORDER
     Dosage: 25 MG-175 MG
     Route: 048
     Dates: start: 20010529
  12. PAXIL [Concomitant]
  13. LAMICTAL [Concomitant]
  14. KLONOPIN [Concomitant]
  15. VALTREX [Concomitant]
  16. LITHIUM CARBONATE [Concomitant]
  17. GEODON [Concomitant]
     Dates: start: 20070101
  18. BENADRYL [Concomitant]
  19. SYNTHROID [Concomitant]
  20. GLUCOPHAGE XR [Concomitant]
  21. DEPAKOTE [Concomitant]
  22. SEROQUEL [Suspect]
     Dosage: 175-200 MG
     Route: 048
     Dates: start: 20010501, end: 20040301
  23. ABILIFY [Concomitant]
     Dates: start: 20060201, end: 20060501
  24. ZYPREXA [Concomitant]
     Indication: SLEEP DISORDER
     Dates: start: 20040401, end: 20040601
  25. GLUCAGEN [Concomitant]
  26. KENALOG [Concomitant]
  27. FEOSOL [Concomitant]
  28. HALDOL [Concomitant]
     Dates: start: 20070101
  29. ATIVAN [Concomitant]

REACTIONS (6)
  - BLOOD TRIGLYCERIDES INCREASED [None]
  - OBESITY [None]
  - HYPOTHYROIDISM [None]
  - TYPE 2 DIABETES MELLITUS [None]
  - BLOOD CHOLESTEROL INCREASED [None]
  - HYPERLIPIDAEMIA [None]
